FAERS Safety Report 8444032-5 (Version None)
Quarter: 2012Q2

REPORT INFORMATION
  Report Type: 
  Country: None (occurrence: None)
  Receive Date: 20120618
  Receipt Date: 20120612
  Transmission Date: 20120825
  Serious: Yes (Disabling, Other)
  Sender: FDA-Public Use
  Company Number: PHEH2012US008170

PATIENT
  Sex: Female

DRUGS (1)
  1. RECLAST [Suspect]
     Indication: OSTEOPENIA
     Dosage: 5 MG/100 ML, YEARLY
     Route: 042
     Dates: start: 20120119

REACTIONS (13)
  - SPEECH DISORDER [None]
  - RASH GENERALISED [None]
  - CONFUSIONAL STATE [None]
  - HYPERHIDROSIS [None]
  - VERTIGO [None]
  - URINARY TRACT INFECTION [None]
  - SKIN DISCOLOURATION [None]
  - TRANSIENT ISCHAEMIC ATTACK [None]
  - NASOPHARYNGITIS [None]
  - HEADACHE [None]
  - TREMOR [None]
  - FALL [None]
  - INFUSION RELATED REACTION [None]
